FAERS Safety Report 9062649 (Version 1)
Quarter: 2013Q1

REPORT INFORMATION
  Report Type: Report from Study
  Country: US (occurrence: US)
  Receive Date: 20130129
  Receipt Date: 20130129
  Transmission Date: 20140127
  Serious: No
  Sender: FDA-Public Use
  Company Number: US-ABBOTT-12P-163-0944544-00

PATIENT
  Age: 23 Year
  Sex: Male

DRUGS (1)
  1. HUMIRA 40 MG/0.8 ML PEN [Suspect]
     Indication: CROHN^S DISEASE
     Dates: start: 201201

REACTIONS (5)
  - Drug abuse [Recovered/Resolved]
  - Depression [Unknown]
  - Gastrooesophageal reflux disease [Unknown]
  - Unevaluable event [Unknown]
  - Constipation [Unknown]
